FAERS Safety Report 4807205-6 (Version None)
Quarter: 2005Q4

REPORT INFORMATION
  Report Type: 
  Country: None (occurrence: None)
  Receive Date: 20051019
  Receipt Date: 20051005
  Transmission Date: 20060501
  Serious: Yes (Hospitalization)
  Sender: FDA-Public Use
  Company Number: 2005JP001887

PATIENT
  Age: 44 Year
  Sex: Female

DRUGS (2)
  1. PROGRAF [Suspect]
     Indication: BONE MARROW TRANSPLANT
     Dosage: UNKNOWN
     Route: 065
  2. METHOTREXATE [Concomitant]

REACTIONS (1)
  - EOSINOPHILIC PNEUMONIA [None]
